FAERS Safety Report 10264091 (Version 4)
Quarter: 2014Q3

REPORT INFORMATION
  Report Type: Report from Study
  Country: TH (occurrence: TH)
  Receive Date: 20140627
  Receipt Date: 20140801
  Transmission Date: 20150326
  Serious: Yes (Hospitalization)
  Sender: FDA-Public Use
  Company Number: TH-009507513-1406THA012421

PATIENT
  Age: 37 Year
  Sex: Female

DRUGS (3)
  1. RIBAVIRIN. [Suspect]
     Active Substance: RIBAVIRIN
     Indication: HEPATITIS C
     Dosage: TOTAL DAILY DOSE: 1000MG, BID
     Route: 048
     Dates: start: 20140430
  2. PEGINTERFERON ALFA-2B [Suspect]
     Active Substance: PEGINTERFERON ALFA-2B
     Indication: HEPATITIS C
     Dosage: 0.4 ML (96 MICROGRAM), QW, FORMULATION: PEN, STRENGTH: 120 MCG
     Route: 058
     Dates: start: 20140430
  3. ATRIPLA [Concomitant]
     Active Substance: EFAVIRENZ\EMTRICITABINE\TENOFOVIR DISOPROXIL FUMARATE
     Indication: HIV INFECTION
     Dosage: STRENGTH AND TOTAL DAILY DOSE: 300/200/600
     Route: 048
     Dates: start: 20140324, end: 20140709

REACTIONS (1)
  - Haematemesis [Recovered/Resolved]

NARRATIVE: CASE EVENT DATE: 20140624
